FAERS Safety Report 7515775-2 (Version None)
Quarter: 2011Q2

REPORT INFORMATION
  Report Type: 
  Country: None (occurrence: None)
  Receive Date: 20110601
  Receipt Date: 20110518
  Transmission Date: 20111010
  Serious: Yes (Life-Threatening, Disabling)
  Sender: FDA-Public Use
  Company Number: IE-CELGENEUS-229-21880-11040082

PATIENT
  Sex: Male
  Weight: 77 kg

DRUGS (9)
  1. DURAGESIC-100 [Concomitant]
     Indication: PAIN
     Route: 062
  2. TRAUSTEC [Concomitant]
     Indication: PAIN
     Dosage: 20 MICROGRAM
     Route: 062
  3. FENTANYL CITRATE [Concomitant]
     Indication: PAIN
     Dosage: 800 MILLIGRAM
     Route: 065
  4. VALACICLOVIR [Concomitant]
     Indication: PAIN
     Dosage: 1000 MILLIGRAM
     Route: 065
  5. CODALAX [Concomitant]
     Indication: CONSTIPATION
     Dosage: 25MG/200MG
     Route: 065
  6. REVLIMID [Suspect]
     Indication: MULTIPLE MYELOMA
     Dosage: 10 MILLIGRAM
     Route: 048
     Dates: start: 20060601, end: 20110301
  7. FLUCONAZOLE [Concomitant]
     Dosage: 200 MILLIGRAM
     Route: 065
  8. OXYCODONE HCL [Concomitant]
     Indication: PAIN
     Dosage: 20 MILLIGRAM
     Route: 065
  9. LYRICA [Concomitant]
     Indication: PAIN
     Dosage: 600 MILLIGRAM
     Route: 065

REACTIONS (1)
  - MYELODYSPLASTIC SYNDROME [None]
